FAERS Safety Report 4968165-0 (Version None)
Quarter: 2006Q2

REPORT INFORMATION
  Report Type: 
  Country: None (occurrence: None)
  Receive Date: 20060405
  Receipt Date: 20060323
  Transmission Date: 20061013
  Serious: Yes (Other)
  Sender: FDA-Public Use
  Company Number: 2006043660

PATIENT
  Age: 64 Year
  Sex: Female

DRUGS (4)
  1. TAHOR (ATORVASTATIN) [Suspect]
     Indication: HYPERCHOLESTEROLAEMIA
     Dosage: 20 MG (1 IN 1 D), UNKNOWN
     Dates: start: 20060208
  2. ACEBUTOLOL (ACEBUTOLOL0 [Concomitant]
  3. LEVOTHYROXINE SODIUM [Concomitant]
  4. KETOPROFEN [Concomitant]

REACTIONS (3)
  - MUSCLE CONTRACTURE [None]
  - MUSCLE SPASMS [None]
  - SHOULDER PAIN [None]
